FAERS Safety Report 7678420-1 (Version None)
Quarter: 2011Q3

REPORT INFORMATION
  Report Type: 
  Country: None (occurrence: None)
  Receive Date: 20110811
  Receipt Date: 20110805
  Transmission Date: 20111222
  Serious: Yes (Death)
  Sender: FDA-Public Use
  Company Number: US-ELI_LILLY_AND_COMPANY-US201108002852

PATIENT
  Sex: Male

DRUGS (7)
  1. METFORMIN HCL [Concomitant]
     Dosage: 500 MG, QD
     Route: 065
  2. LANOXIN [Concomitant]
     Dosage: 0.25 MG, QD
     Route: 065
  3. ASPIRIN [Concomitant]
     Dosage: 81 MG, QD
     Route: 065
  4. TRAMADOL HCL [Concomitant]
     Dosage: 50 MG, EVERY 6 HRS
     Route: 065
  5. GLIPIZIDE [Concomitant]
     Dosage: 10 MG, QD
     Route: 065
  6. ATENOLOL [Concomitant]
     Dosage: 50 MG, BID
     Route: 065
  7. EFFIENT [Suspect]
     Indication: MYOCARDIAL INFARCTION
     Dosage: UNK, UNKNOWN
     Route: 065

REACTIONS (2)
  - OFF LABEL USE [None]
  - MYOCARDIAL INFARCTION [None]
